FAERS Safety Report 19723831 (Version 1)
Quarter: 2021Q3

REPORT INFORMATION
  Report Type: Spontaneous
  Country: DE (occurrence: DE)
  Receive Date: 20210820
  Receipt Date: 20210820
  Transmission Date: 20211014
  Serious: Yes (Congenital Anomaly, Other)
  Sender: FDA-Public Use
  Company Number: DE-AUROBINDO-AUR-APL-2011-05881

PATIENT
  Sex: Male
  Weight: 4.12 kg

DRUGS (5)
  1. VOMEX A [Concomitant]
     Active Substance: DIMENHYDRINATE
     Indication: MORNING SICKNESS
     Dosage: UNK UNK,UNK,
     Route: 064
     Dates: end: 20110303
  2. SERTRALIN [SERTRALINE] [Suspect]
     Active Substance: SERTRALINE HYDROCHLORIDE
     Indication: DEPRESSION
     Dosage: 75 MILLIGRAM, DAILY
     Route: 064
     Dates: start: 20101220, end: 20110118
  3. FOLIO FORTE [Concomitant]
     Active Substance: FOLIC ACID\VITAMINS
     Indication: PROPHYLAXIS OF NEURAL TUBE DEFECT
     Dosage: .8 MG,DAILY,
     Route: 064
     Dates: start: 20101104
  4. LORAZEPAM. [Concomitant]
     Active Substance: LORAZEPAM
     Indication: DEPRESSION
     Dosage: .5 MG,DAILY,
     Route: 064
     Dates: start: 20101220, end: 20110126
  5. SERTRALIN [SERTRALINE] [Suspect]
     Active Substance: SERTRALINE HYDROCHLORIDE
     Dosage: 100 MILLIGRAM, DAILY
     Route: 064
     Dates: start: 20110119, end: 20110802

REACTIONS (7)
  - Transaminases increased [Recovered/Resolved]
  - Atrial septal defect [Unknown]
  - Drug withdrawal syndrome neonatal [Recovered/Resolved]
  - Haemangioma congenital [Recovering/Resolving]
  - Neonatal respiratory distress [Recovered/Resolved]
  - Large for dates baby [Unknown]
  - Petechiae [Recovered/Resolved]

NARRATIVE: CASE EVENT DATE: 20110802
